FAERS Safety Report 26154306 (Version 1)
Quarter: 2025Q4

REPORT INFORMATION
  Report Type: Spontaneous
  Country: US (occurrence: None)
  Receive Date: 20251215
  Receipt Date: 20251215
  Transmission Date: 20260117
  Serious: Yes (Other)
  Sender: ORGANON
  Company Number: US-MLMSERVICE-20251121-PI721784-00064-1

PATIENT
  Age: 30 Year
  Sex: Female

DRUGS (1)
  1. BETAMETHASONE SODIUM PHOSPHATE [Suspect]
     Active Substance: BETAMETHASONE SODIUM PHOSPHATE
     Indication: Asthma
     Dosage: UNK

REACTIONS (3)
  - Pseudo Cushing^s syndrome [Unknown]
  - Hypothalamic pituitary adrenal axis suppression [Unknown]
  - Suspected counterfeit product [Unknown]
